FAERS Safety Report 10021433 (Version 1)
Quarter: 2014Q1

REPORT INFORMATION
  Report Type: Spontaneous
  Country: US (occurrence: None)
  Receive Date: 20140318
  Receipt Date: 20140318
  Transmission Date: 20141002
  Serious: Yes (Life-Threatening)
  Sender: FDA-Public Use
  Company Number: None

PATIENT
  Age: 28 Year
  Sex: Male
  Weight: 102.06 kg

DRUGS (1)
  1. CHANTIX 2MG PFIZER [Suspect]
     Indication: SMOKING CESSATION THERAPY
     Route: 048
     Dates: start: 20140301, end: 20140314

REACTIONS (4)
  - Anger [None]
  - Dissociation [None]
  - Thinking abnormal [None]
  - Abnormal behaviour [None]
